FAERS Safety Report 9964748 (Version 1)
Quarter: 2014Q1

REPORT INFORMATION
  Report Type: Spontaneous
  Country: US (occurrence: US)
  Receive Date: 20140305
  Receipt Date: 20140305
  Transmission Date: 20141002
  Serious: No
  Sender: FDA-Public Use
  Company Number: US-AMGEN-USASP2014000687

PATIENT
  Age: 49 Year
  Sex: Male

DRUGS (1)
  1. ENBREL [Suspect]
     Indication: RHEUMATOID ARTHRITIS
     Dosage: 50 MG, 1XWEEK
     Route: 058
     Dates: start: 201306

REACTIONS (4)
  - Gingival swelling [Unknown]
  - Swelling face [Unknown]
  - Eye swelling [Unknown]
  - Periodontal disease [Unknown]
